FAERS Safety Report 8901776 (Version 1)
Quarter: 2012Q4

REPORT INFORMATION
  Report Type: Spontaneous
  Country: ES (occurrence: None)
  Receive Date: 20121101
  Receipt Date: 20121101
  Transmission Date: 20130627
  Serious: Yes (Death, Hospitalization)
  Sender: FDA-Public Use
  Company Number: 2012RR-61224

PATIENT
  Age: 69 Year
  Sex: Male

DRUGS (2)
  1. DONEPEZIL [Suspect]
     Indication: SMALL CELL LUNG CANCER
     Route: 042
     Dates: start: 20111221
  2. CISPLATIN [Suspect]
     Indication: SMALL CELL LUNG CANCER
     Route: 042
     Dates: start: 20111121, end: 201112

REACTIONS (6)
  - Febrile neutropenia [None]
  - Hypocalcaemia [None]
  - Thrombocytopenia [None]
  - Hypokalaemia [None]
  - Drug interaction [None]
  - Pneumonia [None]
